FAERS Safety Report 5348546-6 (Version None)
Quarter: 2007Q2

REPORT INFORMATION
  Report Type: 
  Country: None (occurrence: None)
  Receive Date: 20070605
  Receipt Date: 20070521
  Transmission Date: 20071010
  Serious: Yes (Other)
  Sender: FDA-Public Use
  Company Number: 100#03#2007-01846

PATIENT
  Age: 60 Year
  Sex: Male

DRUGS (6)
  1. CEFALEXIN (CEFALEXIN) (CEFALEXIN) [Suspect]
     Indication: URINARY TRACT INFECTION
     Dosage: 1DF (3/1 DAYS)
     Route: 048
     Dates: start: 20070429, end: 20070504
  2. CODEINE PHOSPHATE (CODEINE PHOSPHATE) (CODEINE) [Concomitant]
  3. DUTASTERIDE (DUTASTERIDE) (DUTASTERIDE) [Concomitant]
  4. NIQUITIN (NICOTINE) (NICOTINE) [Concomitant]
  5. NITROFURANTOIN (NITROFURANTOIN) (NITROFURANTOIN) [Concomitant]
  6. TAMSULOSIN HYDROCHLORIDE (TAMSULOSIN HYDROCHLORIDE) (TAMSULOSIN) [Concomitant]

REACTIONS (7)
  - ERYTHEMA [None]
  - HEADACHE [None]
  - JOINT SWELLING [None]
  - OEDEMA PERIPHERAL [None]
  - PAIN [None]
  - PALLOR [None]
  - RASH GENERALISED [None]
